FAERS Safety Report 26165479 (Version 2)
Quarter: 2025Q4

REPORT INFORMATION
  Report Type: Other
  Country: US (occurrence: US)
  Receive Date: 20251216
  Receipt Date: 20251222
  Transmission Date: 20260118
  Serious: Yes (Hospitalization)
  Sender: TRAVERE THERAPEUTICS
  Company Number: US-TRAVERE-2025TVT02379

PATIENT
  Sex: Female

DRUGS (1)
  1. FILSPARI [Suspect]
     Active Substance: SPARSENTAN
     Indication: IgA nephropathy
     Route: 048

REACTIONS (7)
  - Dehydration [Unknown]
  - Glomerular filtration rate decreased [Unknown]
  - Illness [Unknown]
  - Myalgia [Unknown]
  - Injection site infection [Unknown]
  - Hypersensitivity [Unknown]
  - Malaise [Unknown]
